FAERS Safety Report 5121585-6 (Version None)
Quarter: 2006Q4

REPORT INFORMATION
  Report Type: 
  Country: None (occurrence: None)
  Receive Date: 20061006
  Receipt Date: 20060929
  Transmission Date: 20070319
  Serious: Yes (Other)
  Sender: FDA-Public Use
  Company Number: US-BAYER-200615817BWH

PATIENT
  Age: 42 Year
  Sex: Female

DRUGS (4)
  1. NEXAVAR [Suspect]
     Indication: LUNG NEOPLASM MALIGNANT
     Dosage: TOTAL DAILY DOSE: 800 MG  UNIT DOSE: 200 MG
     Route: 048
     Dates: start: 20060920, end: 20060925
  2. LOVENOX [Concomitant]
     Dosage: TOTAL DAILY DOSE: 110 MG
  3. POTASSIUM SUPPLEMENT [Concomitant]
  4. VITAMIN D [Concomitant]

REACTIONS (1)
  - VERTIGO [None]
